FAERS Safety Report 24624603 (Version 2)
Quarter: 2024Q4

REPORT INFORMATION
  Report Type: Spontaneous
  Country: FR (occurrence: FR)
  Receive Date: 20241115
  Receipt Date: 20241219
  Transmission Date: 20250114
  Serious: No
  Sender: PFIZER
  Company Number: FR-PFIZER INC-202400296564

PATIENT
  Age: 56 Year
  Sex: Female

DRUGS (1)
  1. ENBREL [Suspect]
     Active Substance: ETANERCEPT
     Dosage: 50 MG, WEEKLY

REACTIONS (1)
  - Injection site pain [Unknown]
